FAERS Safety Report 8421088-7 (Version None)
Quarter: 2012Q2

REPORT INFORMATION
  Report Type: 
  Country: None (occurrence: None)
  Receive Date: 20120608
  Receipt Date: 20120601
  Transmission Date: 20120825
  Serious: Yes (Life-Threatening)
  Sender: FDA-Public Use
  Company Number: CL-CELGENEUS-034-C5013-12060441

PATIENT
  Sex: Male
  Weight: 79 kg

DRUGS (8)
  1. OMEPRAZOLE [Concomitant]
     Dosage: 20 MILLIGRAM
     Route: 065
     Dates: start: 20110201
  2. TESTOTERONE [Concomitant]
     Dosage: 1000 MILLIGRAM
     Route: 030
     Dates: start: 20070101
  3. CHLORPHENIRAMINE TAB [Concomitant]
     Route: 048
     Dates: start: 20110914, end: 20111020
  4. LOSARTAN POTASSIUM [Concomitant]
     Dosage: 50 MILLIGRAM
     Route: 048
     Dates: start: 20050101
  5. CLONAZEPAM [Concomitant]
     Indication: INSOMNIA
     Route: 048
     Dates: start: 20050101
  6. LENALIDOMIDE [Suspect]
     Route: 048
     Dates: start: 20110816
  7. ALLOPURINOL [Concomitant]
     Indication: PROPHYLAXIS
     Dosage: 300 MILLIGRAM
     Route: 048
     Dates: start: 20110813, end: 20110920
  8. LENALIDOMIDE [Suspect]
     Route: 048
     Dates: start: 20110924, end: 20110929

REACTIONS (1)
  - METASTASES TO PERITONEUM [None]
